FAERS Safety Report 5465033-5 (Version None)
Quarter: 2007Q3

REPORT INFORMATION
  Report Type: 
  Country: None (occurrence: None)
  Receive Date: 20070820
  Receipt Date: 20070522
  Transmission Date: 20080115
  Serious: No
  Sender: FDA-Public Use
  Company Number: TPA2007A00890

PATIENT
  Age: 57 Year
  Sex: Female
  Weight: 48.5349 kg

DRUGS (5)
  1. ROZEREM [Suspect]
     Indication: INITIAL INSOMNIA
     Dosage: 8 MG, HS, PER ORAL
     Route: 048
     Dates: start: 20060101, end: 20060101
  2. VIVELLE [Concomitant]
  3. FOSAMAX [Concomitant]
  4. ASTELIN [Concomitant]
  5. NASAREL (FLUNISOLIDE) [Concomitant]

REACTIONS (1)
  - INITIAL INSOMNIA [None]
